FAERS Safety Report 8804167 (Version 1)
Quarter: 2012Q4

REPORT INFORMATION
  Report Type: 
  Country: IT (occurrence: IT)
  Receive Date: 20120924
  Receipt Date: 20120924
  Transmission Date: 20130627
  Serious: Yes (Death)
  Sender: FDA-Public Use
  Company Number: IT-UCBSA-066481

PATIENT

DRUGS (3)
  1. LACOSAMIDE [Suspect]
     Dosage: 200 MG
     Route: 042
  2. LACOSAMIDE [Suspect]
     Dosage: DAILY DOSE: 400 MG
     Route: 048
  3. LACOSAMIDE [Suspect]
     Route: 048

REACTIONS (1)
  - Death [Fatal]
